FAERS Safety Report 23277807 (Version 1)
Quarter: 2023Q4

REPORT INFORMATION
  Report Type: Spontaneous
  Country: US (occurrence: US)
  Receive Date: 20231208
  Receipt Date: 20231208
  Transmission Date: 20240109
  Serious: Yes (Other)
  Sender: FDA-Public Use
  Company Number: US-ENDO-CASE-0048800

PATIENT

DRUGS (10)
  1. ENDOCET [Suspect]
     Active Substance: ACETAMINOPHEN\OXYCODONE HYDROCHLORIDE
  2. ACETAMINOPHEN\OXYCODONE HYDROCHLORIDE [Suspect]
     Active Substance: ACETAMINOPHEN\OXYCODONE HYDROCHLORIDE
  3. PERCOCET [Suspect]
     Active Substance: ACETAMINOPHEN\OXYCODONE HYDROCHLORIDE
  4. BUPRENORPHINE HYDROCHLORIDE [Suspect]
     Active Substance: BUPRENORPHINE HYDROCHLORIDE
  5. ACETAMINOPHEN\HYDROCODONE BITARTRATE [Suspect]
     Active Substance: ACETAMINOPHEN\HYDROCODONE BITARTRATE
  6. MORPHINE SULFATE [Suspect]
     Active Substance: MORPHINE SULFATE
  7. FENTANYL CITRATE [Suspect]
     Active Substance: FENTANYL CITRATE
  8. ACETAMINOPHEN\HYDROCODONE BITARTRATE [Suspect]
     Active Substance: ACETAMINOPHEN\HYDROCODONE BITARTRATE
  9. BELBUCA [Suspect]
     Active Substance: BUPRENORPHINE HYDROCHLORIDE
  10. DEPODUR [Suspect]
     Active Substance: MORPHINE SULFATE

REACTIONS (5)
  - Nerve injury [Unknown]
  - Overdose [Unknown]
  - Dependence [Unknown]
  - Amnesia [Unknown]
  - Growth hormone deficiency [Unknown]
